FAERS Safety Report 7131317-8 (Version None)
Quarter: 2010Q4

REPORT INFORMATION
  Report Type: 
  Country: None (occurrence: None)
  Receive Date: 20101201
  Receipt Date: 20101122
  Transmission Date: 20110411
  Serious: Yes (Hospitalization, Other)
  Sender: FDA-Public Use
  Company Number: IN-BAXTER-2010BH028860

PATIENT
  Age: 59 Year
  Sex: Male

DRUGS (3)
  1. DIANEAL [Suspect]
     Indication: PERITONEAL DIALYSIS
     Route: 033
     Dates: start: 20101028, end: 20101125
  2. DIANEAL [Suspect]
     Route: 033
     Dates: start: 20101028, end: 20101125
  3. DIANEAL [Suspect]
     Route: 033
     Dates: start: 20101121, end: 20101125

REACTIONS (3)
  - CEREBROVASCULAR ACCIDENT [None]
  - CONSTIPATION [None]
  - PERITONITIS BACTERIAL [None]
